FAERS Safety Report 25023346 (Version 2)
Quarter: 2025Q1

REPORT INFORMATION
  Report Type: Spontaneous
  Country: BE (occurrence: BE)
  Receive Date: 20250228
  Receipt Date: 20250320
  Transmission Date: 20250409
  Serious: Yes (Hospitalization)
  Sender: AUROBINDO
  Company Number: BE-FAMHP-DHH-N2025-123872

PATIENT
  Age: 25 Year
  Sex: Female

DRUGS (1)
  1. ACETAMINOPHEN [Suspect]
     Active Substance: ACETAMINOPHEN
     Indication: Product used for unknown indication
     Dosage: 19 DOSAGE FORM, 1 X TOTAL (19.00 PILLS, ONCE)
     Route: 048

REACTIONS (2)
  - Headache [Not Recovered/Not Resolved]
  - Intentional overdose [Not Recovered/Not Resolved]
